FAERS Safety Report 5932845-0 (Version None)
Quarter: 2008Q4

REPORT INFORMATION
  Report Type: 
  Country: None (occurrence: None)
  Receive Date: 20081023
  Receipt Date: 20060717
  Transmission Date: 20090506
  Serious: Yes (Life-Threatening, Other)
  Sender: FDA-Public Use
  Company Number: 2006AL002227

PATIENT
  Age: 21 Year
  Sex: Female

DRUGS (1)
  1. CITALOPRAM HYDROBROMIDE [Suspect]
     Indication: DEPRESSION
     Dosage: 20 MG;QD;PO
     Route: 048
     Dates: start: 20051220, end: 20060320

REACTIONS (3)
  - ALCOHOL INTERACTION [None]
  - INTENTIONAL SELF-INJURY [None]
  - SUICIDAL IDEATION [None]
